FAERS Safety Report 16229658 (Version 2)
Quarter: 2019Q3

REPORT INFORMATION
  Report Type: Spontaneous
  Country: NZ (occurrence: NZ)
  Receive Date: 20190423
  Receipt Date: 20190711
  Transmission Date: 20191004
  Serious: Yes (Other)
  Sender: FDA-Public Use
  Company Number: NZ-PFIZER INC-2019155790

PATIENT
  Age: 63 Year
  Sex: Female
  Weight: 51.8 kg

DRUGS (3)
  1. DILANTIN [Suspect]
     Active Substance: PHENYTOIN
     Dosage: 300 MG, 1X/DAY (MANE)
  2. DILANTIN [Suspect]
     Active Substance: PHENYTOIN
     Dosage: 190 MG, 1X/DAY (MANE)
     Dates: start: 20181204
  3. DILANTIN [Suspect]
     Active Substance: PHENYTOIN
     Dosage: 90 MG, 1X/DAY (MANE)

REACTIONS (3)
  - Seizure [Recovered/Resolved]
  - Anticonvulsant drug level decreased [Unknown]
  - Product formulation issue [Unknown]

NARRATIVE: CASE EVENT DATE: 20181211
